FAERS Safety Report 24678233 (Version 2)
Quarter: 2025Q1

REPORT INFORMATION
  Report Type: Spontaneous
  Country: JP (occurrence: JP)
  Receive Date: 20241129
  Receipt Date: 20250213
  Transmission Date: 20250408
  Serious: Yes (Death, Other)
  Sender: JAZZ
  Company Number: JP-JAZZ PHARMACEUTICALS-2024-JP-014881

PATIENT
  Age: 48 Year
  Sex: Female

DRUGS (3)
  1. VYXEOS [Suspect]
     Active Substance: CYTARABINE\DAUNORUBICIN
     Indication: Acute myeloid leukaemia
     Route: 042
     Dates: start: 20240809, end: 20240813
  2. VYXEOS [Suspect]
     Active Substance: CYTARABINE\DAUNORUBICIN
     Route: 042
     Dates: start: 20240814, end: 2024
  3. VYXEOS [Suspect]
     Active Substance: CYTARABINE\DAUNORUBICIN
     Route: 042
     Dates: start: 20241107, end: 20241109

REACTIONS (7)
  - Infection [Fatal]
  - Acute myeloid leukaemia [Unknown]
  - Cytopenia [Unknown]
  - Myelosuppression [Recovered/Resolved]
  - Neutrophil count decreased [Not Recovered/Not Resolved]
  - Physical deconditioning [Unknown]
  - Infection [Recovered/Resolved]

NARRATIVE: CASE EVENT DATE: 20240101
